FAERS Safety Report 10990667 (Version 1)
Quarter: 2015Q2

REPORT INFORMATION
  Report Type: Spontaneous
  Country: GB (occurrence: GB)
  Receive Date: 20150406
  Receipt Date: 20150406
  Transmission Date: 20150821
  Serious: Yes (Other)
  Sender: FDA-Public Use
  Company Number: GB-TEVA-551711ACC

PATIENT
  Age: 12 Month
  Sex: Female

DRUGS (1)
  1. CLARITHROMYCIN. [Suspect]
     Active Substance: CLARITHROMYCIN
     Indication: PRODUCT USED FOR UNKNOWN INDICATION
     Dosage: CLARITHROMYCIN 125MG/5ML
     Route: 065

REACTIONS (7)
  - Colitis [Unknown]
  - Screaming [Unknown]
  - Haematochezia [Unknown]
  - Diarrhoea [Unknown]
  - Pain [Unknown]
  - Drug hypersensitivity [Unknown]
  - Mucous stools [Unknown]
